FAERS Safety Report 5890143-8 (Version None)
Quarter: 2008Q3

REPORT INFORMATION
  Report Type: 
  Country: None (occurrence: None)
  Receive Date: 20080919
  Receipt Date: 20080911
  Transmission Date: 20090109
  Serious: Yes (Other)
  Sender: FDA-Public Use
  Company Number: US-JNJCH-2008023789

PATIENT
  Sex: Male

DRUGS (1)
  1. COOL MINT LISTERINE [Suspect]
     Indication: ACCIDENTAL EXPOSURE
     Dosage: TEXT:UNSPECIFIED
     Route: 047

REACTIONS (2)
  - ACCIDENTAL EXPOSURE [None]
  - BLINDNESS [None]
